FAERS Safety Report 9924497 (Version 1)
Quarter: 2014Q1

REPORT INFORMATION
  Report Type: Report from Study
  Country: HR (occurrence: HR)
  Receive Date: 20140226
  Receipt Date: 20140226
  Transmission Date: 20141002
  Serious: Yes (Other)
  Sender: FDA-Public Use
  Company Number: HR-ASTELLAS-2014EU001559

PATIENT
  Sex: Female

DRUGS (14)
  1. TACROLIMUS CAPSULES [Suspect]
     Indication: RENAL TRANSPLANT
     Dosage: 3 MG, BID
     Route: 065
     Dates: start: 20131206
  2. CELLCEPT /01275102/ [Suspect]
     Indication: RENAL TRANSPLANT
     Dosage: 1500 MG, UNKNOWN/D
     Route: 065
     Dates: start: 20130604
  3. DECORTIN [Suspect]
     Indication: RENAL TRANSPLANT
     Dosage: 5 MG, UNKNOWN/D
     Route: 065
     Dates: start: 20130604
  4. CONTROLOC                          /01263201/ [Concomitant]
     Dosage: 40 MG, UNKNOWN/D
     Route: 048
     Dates: start: 2013
  5. DIFLUCAN [Concomitant]
     Dosage: 40 MG, UNKNOWN/D
     Route: 065
     Dates: start: 2013
  6. VALCYTE [Concomitant]
     Dosage: 225 MG, UNKNOWN/D
     Route: 048
  7. SINERSUL [Concomitant]
     Dosage: 240 MG, UNKNOWN/D
     Route: 048
     Dates: start: 2013
  8. EUTHYROX [Concomitant]
     Dosage: 0.5 MG, UNKNOWN/D
     Route: 048
     Dates: start: 2013
  9. FUROSEMID                          /00032601/ [Concomitant]
     Dosage: 40 MG, UNKNOWN/D
     Route: 048
     Dates: start: 2013
  10. CRESTOR [Concomitant]
     Dosage: 10 MG, UNKNOWN/D
     Route: 048
     Dates: start: 2013
  11. NEBILET [Concomitant]
     Dosage: 5 MG, UNKNOWN/D
     Route: 048
     Dates: start: 2013
  12. EBRANTIL                           /00631801/ [Concomitant]
     Dosage: 180 MG, UNKNOWN/D
     Route: 048
     Dates: start: 2013
  13. ALDIZEM                            /00489701/ [Concomitant]
     Dosage: 120 MG, UNKNOWN/D
     Route: 048
     Dates: start: 2013
  14. ROCALTROL [Concomitant]
     Dosage: 0.25 MG, UNKNOWN/D
     Route: 048
     Dates: start: 2013

REACTIONS (1)
  - Glomerulonephritis [Recovered/Resolved with Sequelae]
